FAERS Safety Report 6521420-5 (Version None)
Quarter: 2009Q4

REPORT INFORMATION
  Report Type: 
  Country: None (occurrence: None)
  Receive Date: 20091230
  Receipt Date: 20091221
  Transmission Date: 20100525
  Serious: Yes (Hospitalization, Disabling, Other)
  Sender: FDA-Public Use
  Company Number: US-BAYER-200924312NA

PATIENT
  Age: 35 Year
  Sex: Female

DRUGS (5)
  1. BETASERON [Suspect]
     Indication: RELAPSING-REMITTING MULTIPLE SCLEROSIS
     Dosage: TOTAL DAILY DOSE: 4 MIU
     Route: 058
     Dates: start: 20081204
  2. BETASERON [Suspect]
     Dosage: TOTAL DAILY DOSE: 6 MIU
     Route: 058
  3. BETASERON [Suspect]
     Dosage: TOTAL DAILY DOSE: 8 MIU
     Route: 058
     Dates: end: 20091122
  4. TYLENOL (CAPLET) [Concomitant]
     Indication: PREMEDICATION
     Dosage: TOTAL DAILY DOSE: 2 DF
     Route: 065
  5. BENADRYL [Concomitant]
     Indication: PREMEDICATION
     Dosage: TOTAL DAILY DOSE: 1 DF
     Route: 065

REACTIONS (11)
  - ABASIA [None]
  - CHILLS [None]
  - HEMIPARESIS [None]
  - HEMIPLEGIA [None]
  - INFLUENZA LIKE ILLNESS [None]
  - INJECTION SITE PAIN [None]
  - INJECTION SITE REACTION [None]
  - JOINT STIFFNESS [None]
  - PAIN [None]
  - PARAESTHESIA [None]
  - PYREXIA [None]
